FAERS Safety Report 8927787 (Version 6)
Quarter: 2013Q2

REPORT INFORMATION
  Report Type: Spontaneous
  Country: FR (occurrence: FR)
  Receive Date: 20121127
  Receipt Date: 20130620
  Transmission Date: 20140414
  Serious: Yes (Death, Life-Threatening, Hospitalization)
  Sender: FDA-Public Use
  Company Number: FR-ROCHE-1160121

PATIENT
  Age: 80 Year
  Sex: Female
  Weight: 40 kg

DRUGS (5)
  1. ROACTEMRA [Suspect]
     Indication: RHEUMATOID ARTHRITIS
     Route: 041
     Dates: start: 20120112, end: 20120112
  2. ROACTEMRA [Suspect]
     Route: 065
     Dates: start: 20120202
  3. KARDEGIC [Concomitant]
     Dosage: 75: 1 SACHET
     Route: 048
     Dates: end: 20120312
  4. DOLIPRANE [Concomitant]
     Dosage: 3 TO 4 G
     Route: 048
     Dates: end: 20120312
  5. PROTELOS [Concomitant]
     Route: 065
     Dates: start: 201105, end: 201112

REACTIONS (9)
  - Interstitial lung disease [Fatal]
  - Malnutrition [Not Recovered/Not Resolved]
  - Oropharyngeal candidiasis [Not Recovered/Not Resolved]
  - Oral herpes [Not Recovered/Not Resolved]
  - Unevaluable event [Fatal]
  - Haematoma [Fatal]
  - General physical health deterioration [Fatal]
  - Respiratory distress [Recovered/Resolved]
  - Phlebitis [Unknown]
